FAERS Safety Report 8832323 (Version 2)
Quarter: 2012Q4

REPORT INFORMATION
  Report Type: 
  Country: US (occurrence: US)
  Receive Date: 20121009
  Receipt Date: 20121023
  Transmission Date: 20130627
  Serious: Yes (Other)
  Sender: FDA-Public Use
  Company Number: CHPA2012US020623

PATIENT
  Age: 73 Year
  Sex: Female

DRUGS (7)
  1. MAALOX ANTACID/ANTIGAS MAX QDTABS ASST [Suspect]
     Indication: DYSPEPSIA
     Dosage: 1 tablet in the evening
     Route: 048
     Dates: start: 200803
  2. TAXOL [Concomitant]
     Indication: CHEMOTHERAPY
     Dosage: UNK
     Dates: start: 2007
  3. ADRIAMYCIN [Concomitant]
     Indication: CHEMOTHERAPY
     Dosage: UNK
     Dates: start: 2007
  4. CHEMOTHERAPEUTICS [Concomitant]
     Indication: BREAST CANCER
     Dosage: UNK
     Dates: start: 2007
  5. RADIATION [Concomitant]
     Indication: BREAST CANCER
     Dosage: UNK, 5 days per week
     Dates: start: 2007
  6. SYNTHROID [Concomitant]
     Indication: THYROID DISORDER
  7. BENADRYL ^ACHE^ [Concomitant]
     Indication: HYPERSENSITIVITY
     Dosage: UNK, as needed

REACTIONS (6)
  - Neuropathy peripheral [Not Recovered/Not Resolved]
  - Bacterial infection [Not Recovered/Not Resolved]
  - Hypoaesthesia [Not Recovered/Not Resolved]
  - Condition aggravated [Not Recovered/Not Resolved]
  - Gait disturbance [Not Recovered/Not Resolved]
  - Dermatitis contact [Unknown]
